FAERS Safety Report 6635884-X (Version None)
Quarter: 2010Q1

REPORT INFORMATION
  Report Type: 
  Country: None (occurrence: None)
  Receive Date: 20100311
  Receipt Date: 20100225
  Transmission Date: 20100710
  Serious: Yes (Other)
  Sender: FDA-Public Use
  Company Number: US-1180721

PATIENT
  Sex: Female
  Weight: 119.7496 kg

DRUGS (3)
  1. VIGAMOX [Suspect]
     Indication: CONJUNCTIVITIS INFECTIVE
     Dosage: ONE GTT TID OS OPHTHALMIC
     Route: 047
     Dates: start: 20100122, end: 20100127
  2. SIMVASTATIN [Concomitant]
  3. MOBIC [Concomitant]

REACTIONS (7)
  - BLISTER [None]
  - CONJUNCTIVAL SCAR [None]
  - EYE HAEMORRHAGE [None]
  - EYELID PTOSIS [None]
  - HYPOAESTHESIA FACIAL [None]
  - OCULAR HYPERAEMIA [None]
  - PHOTOPHOBIA [None]
